FAERS Safety Report 15394918 (Version 2)
Quarter: 2018Q4

REPORT INFORMATION
  Report Type: Spontaneous
  Country: US (occurrence: US)
  Receive Date: 20180918
  Receipt Date: 20181103
  Transmission Date: 20190204
  Serious: Yes (Life-Threatening, Hospitalization, Other)
  Sender: FDA-Public Use
  Company Number: US-ACCORD-071649

PATIENT
  Sex: Female

DRUGS (11)
  1. ETOPOSIDE. [Suspect]
     Active Substance: ETOPOSIDE
     Indication: B PRECURSOR TYPE ACUTE LEUKAEMIA
  2. CYCLOPHOSPHAMIDE/CYCLOPHOSPHAMIDE MONOHYDRATE [Suspect]
     Active Substance: CYCLOPHOSPHAMIDE
     Indication: B PRECURSOR TYPE ACUTE LEUKAEMIA
  3. DAUNORUBICIN [Suspect]
     Active Substance: DAUNORUBICIN
     Indication: B PRECURSOR TYPE ACUTE LEUKAEMIA
  4. LESTAURTINIB [Suspect]
     Active Substance: LESTAURTINIB
     Indication: B PRECURSOR TYPE ACUTE LEUKAEMIA
  5. FILGRASTIM/GRANULOCYTE COLONY STIMULATING/LENOGRASTIM [Suspect]
     Active Substance: GRANULOCYTE COLONY-STIMULATING FACTOR NOS
     Indication: B PRECURSOR TYPE ACUTE LEUKAEMIA
  6. CYTARABINE/CYTARABINE HYDROCHLORIDE/CYTARABINE OCFOSFATE [Suspect]
     Active Substance: CYTARABINE
     Indication: B PRECURSOR TYPE ACUTE LEUKAEMIA
     Route: 037
  7. VINCRISTINE/VINCRISTINE SULFATE [Suspect]
     Active Substance: VINCRISTINE
     Indication: B PRECURSOR TYPE ACUTE LEUKAEMIA
  8. METHYLPREDNISOLONE. [Suspect]
     Active Substance: METHYLPREDNISOLONE
     Indication: B PRECURSOR TYPE ACUTE LEUKAEMIA
  9. ASPARAGINASE [Suspect]
     Active Substance: ASPARAGINASE
     Indication: B PRECURSOR TYPE ACUTE LEUKAEMIA
  10. HYDROCORTISONE. [Suspect]
     Active Substance: HYDROCORTISONE
     Indication: B PRECURSOR TYPE ACUTE LEUKAEMIA
     Route: 037
  11. METHOTREXATE. [Suspect]
     Active Substance: METHOTREXATE
     Indication: B PRECURSOR TYPE ACUTE LEUKAEMIA
     Route: 037

REACTIONS (20)
  - Hypogammaglobulinaemia [Recovering/Resolving]
  - Febrile neutropenia [Recovering/Resolving]
  - Dermatitis [Recovered/Resolved]
  - Candida infection [Recovered/Resolved]
  - Staphylococcal infection [Recovered/Resolved]
  - Hypertension [Unknown]
  - Otitis externa [Unknown]
  - Septic shock [Recovered/Resolved]
  - Lymphopenia [Recovered/Resolved]
  - Immunodeficiency [Recovered/Resolved]
  - Graft versus host disease [Recovering/Resolving]
  - Clostridium difficile colitis [Recovered/Resolved]
  - Pulmonary oedema [Unknown]
  - Erythema multiforme [Recovered/Resolved]
  - Enterococcal infection [Recovered/Resolved]
  - Skin necrosis [Recovered/Resolved]
  - Bronchiolitis [Recovered/Resolved]
  - Klebsiella infection [Recovered/Resolved]
  - Conjunctivitis [Recovered/Resolved]
  - Corona virus infection [Recovered/Resolved]
